FAERS Safety Report 5463037-X (Version None)
Quarter: 2007Q3

REPORT INFORMATION
  Report Type: 
  Country: None (occurrence: None)
  Receive Date: 20070918
  Receipt Date: 20070918
  Transmission Date: 20080115
  Serious: Yes (Other)
  Sender: FDA-Public Use
  Company Number: None

PATIENT
  Sex: Male
  Weight: 63.5036 kg

DRUGS (3)
  1. CEFADROXIL [Suspect]
     Indication: ANTIBIOTIC PROPHYLAXIS
     Dosage: 500 MG 2/DAY PO
     Route: 048
     Dates: start: 20070824, end: 20070914
  2. CEFADROXIL [Suspect]
     Indication: MALIGNANT MELANOMA
     Dosage: 500 MG 2/DAY PO
     Route: 048
     Dates: start: 20070824, end: 20070914
  3. CEFADROXIL [Suspect]
     Indication: SKIN NEOPLASM EXCISION
     Dosage: 500 MG 2/DAY PO
     Route: 048
     Dates: start: 20070824, end: 20070914

REACTIONS (1)
  - WHITE BLOOD CELL COUNT DECREASED [None]
